FAERS Safety Report 7346229-4 (Version None)
Quarter: 2011Q1

REPORT INFORMATION
  Report Type: 
  Country: None (occurrence: None)
  Receive Date: 20110311
  Receipt Date: 20110307
  Transmission Date: 20110831
  Serious: No
  Sender: FDA-Public Use
  Company Number: US-PFIZER INC-2011049837

PATIENT
  Sex: Female
  Weight: 59 kg

DRUGS (1)
  1. DEPO-PROVERA [Suspect]
     Indication: CONTRACEPTION
     Dosage: EVERY 3 MONTHS
     Route: 030
     Dates: start: 20080801, end: 20100801

REACTIONS (4)
  - WEIGHT INCREASED [None]
  - HEADACHE [None]
  - ALOPECIA [None]
  - MUSCLE SPASMS [None]
